FAERS Safety Report 8968044 (Version 1)
Quarter: 2012Q4

REPORT INFORMATION
  Report Type: 
  Country: FR (occurrence: FR)
  Receive Date: 20121218
  Receipt Date: 20121218
  Transmission Date: 20130627
  Serious: Yes (Life-Threatening, Hospitalization)
  Sender: FDA-Public Use
  Company Number: FR-ELI_LILLY_AND_COMPANY-FR201212002964

PATIENT
  Sex: Male

DRUGS (4)
  1. ALIMTA [Suspect]
     Indication: BRONCHIAL CARCINOMA
     Dosage: UNK
     Route: 042
     Dates: start: 201207
  2. EPREX [Concomitant]
     Indication: ANAEMIA
     Dosage: 3000 IU, weekly (1/W)
     Dates: start: 201208, end: 20120926
  3. AVASTIN [Concomitant]
     Indication: BRONCHIAL CARCINOMA
     Dosage: UNK
     Dates: start: 201207
  4. CARBOPLATIN [Concomitant]
     Indication: BRONCHIAL CARCINOMA
     Dosage: UNK
     Dates: start: 201207

REACTIONS (3)
  - Pulmonary embolism [Unknown]
  - Anaemia [Unknown]
  - Off label use [Unknown]
